FAERS Safety Report 12205326 (Version 3)
Quarter: 2016Q2

REPORT INFORMATION
  Report Type: Spontaneous
  Country: US (occurrence: US)
  Receive Date: 20160323
  Receipt Date: 20160411
  Transmission Date: 20160815
  Serious: Yes (Hospitalization)
  Sender: FDA-Public Use
  Company Number: US-SMITH AND NEPHEW, INC-2016SMT00243

PATIENT
  Sex: Female
  Weight: 86.62 kg

DRUGS (2)
  1. UNSPECIFIED HEART MEDICATIONS [Concomitant]
  2. REGRANEX [Suspect]
     Active Substance: BECAPLERMIN
     Indication: DIABETIC FOOT
     Dosage: UNK UNK, 1X/DAY
     Route: 061

REACTIONS (4)
  - Toe amputation [Recovered/Resolved with Sequelae]
  - Application site swelling [Recovered/Resolved with Sequelae]
  - Osteomyelitis [Recovered/Resolved with Sequelae]
  - Wound complication [Recovered/Resolved with Sequelae]

NARRATIVE: CASE EVENT DATE: 2016
